FAERS Safety Report 11338255 (Version 1)
Quarter: 2015Q3

REPORT INFORMATION
  Report Type: Spontaneous
  Country: US (occurrence: US)
  Receive Date: 20150803
  Receipt Date: 20150803
  Transmission Date: 20151125
  Serious: No
  Sender: FDA-Public Use
  Company Number: US-ELI_LILLY_AND_COMPANY-US201008004820

PATIENT
  Age: 97 Year
  Sex: Female

DRUGS (1)
  1. ZYPREXA [Suspect]
     Active Substance: OLANZAPINE
     Indication: DEMENTIA
     Dosage: 2.5 MG, DAILY (1/D)

REACTIONS (11)
  - Agitation [Unknown]
  - Restlessness [Unknown]
  - Drug ineffective [Unknown]
  - Condition aggravated [Unknown]
  - Hallucination, visual [Unknown]
  - Belligerence [Unknown]
  - Off label use [Unknown]
  - Confusional state [Unknown]
  - Speech disorder [Unknown]
  - Logorrhoea [Unknown]
  - Psychomotor hyperactivity [Unknown]
